FAERS Safety Report 18611036 (Version 1)
Quarter: 2020Q4

REPORT INFORMATION
  Report Type: Spontaneous
  Country: US (occurrence: US)
  Receive Date: 20201214
  Receipt Date: 20201214
  Transmission Date: 20210114
  Serious: No
  Sender: FDA-Public Use
  Company Number: US-ASTRAZENECA-2020SF61809

PATIENT
  Sex: Male
  Weight: 106.6 kg

DRUGS (2)
  1. ALBUTEROL. [Concomitant]
     Active Substance: ALBUTEROL
  2. SYMBICORT [Suspect]
     Active Substance: BUDESONIDE\FORMOTEROL FUMARATE DIHYDRATE
     Indication: ASTHMA
     Dosage: 160/4.5 MCG, INHALATION, 2 PUFFS, TWICE DAILY
     Route: 055
     Dates: start: 2015

REACTIONS (3)
  - Device ineffective [Unknown]
  - Wrong technique in device usage process [Unknown]
  - Asthma [Recovering/Resolving]
